FAERS Safety Report 7721990-5 (Version None)
Quarter: 2011Q3

REPORT INFORMATION
  Report Type: 
  Country: None (occurrence: None)
  Receive Date: 20110831
  Receipt Date: 20110826
  Transmission Date: 20111222
  Serious: Yes (Other)
  Sender: FDA-Public Use
  Company Number: US-PFIZER INC-2011199644

PATIENT
  Sex: Female

DRUGS (5)
  1. DILANTIN [Suspect]
     Dosage: 150 MG, 1X/DAY
     Route: 048
     Dates: start: 20010101, end: 20110820
  2. DILANTIN [Suspect]
     Dosage: UNK
     Route: 048
     Dates: start: 20110820
  3. TEGRETOL [Concomitant]
     Indication: EPILEPSY
     Dosage: UNK
  4. TOPAMAX [Concomitant]
     Indication: EPILEPSY
     Dosage: UNK
  5. DILANTIN [Suspect]
     Indication: EPILEPSY
     Dosage: 300 MG, 1X/DAY
     Route: 048
     Dates: start: 20010101, end: 20110820

REACTIONS (1)
  - AURA [None]
